FAERS Safety Report 18798347 (Version 3)
Quarter: 2021Q1

REPORT INFORMATION
  Report Type: Report from Study
  Country: BE (occurrence: BE)
  Receive Date: 20210128
  Receipt Date: 20210316
  Transmission Date: 20210419
  Serious: Yes (Death, Hospitalization)
  Sender: FDA-Public Use
  Company Number: BE-KARYOPHARM-2020KPT001543

PATIENT
  Age: 72 Year
  Sex: Male

DRUGS (1)
  1. SELINEXOR [Suspect]
     Active Substance: SELINEXOR
     Indication: DIFFUSE LARGE B-CELL LYMPHOMA
     Dosage: 60 MG, 2X/WEEK
     Route: 048
     Dates: start: 20201202, end: 20201229

REACTIONS (5)
  - Diffuse large B-cell lymphoma [Fatal]
  - Nausea [Recovering/Resolving]
  - Fatigue [Not Recovered/Not Resolved]
  - Decreased appetite [Unknown]
  - Asthenia [Unknown]

NARRATIVE: CASE EVENT DATE: 20201205
